FAERS Safety Report 10055600 (Version 1)
Quarter: 2014Q2

REPORT INFORMATION
  Report Type: Spontaneous
  Country: US (occurrence: None)
  Receive Date: 20140402
  Receipt Date: 20140402
  Transmission Date: 20141212
  Serious: Yes (Life-Threatening, Hospitalization, Disabling)
  Sender: FDA-Public Use
  Company Number: None

PATIENT
  Age: 56 Year
  Sex: Male
  Weight: 117.94 kg

DRUGS (20)
  1. LATUDA [Suspect]
     Indication: PRODUCT USED FOR UNKNOWN INDICATION
     Dates: start: 201203, end: 201206
  2. HYDROMORPHONE [Concomitant]
  3. BUSPIRONE [Concomitant]
  4. DIAZEPAM [Concomitant]
  5. ZYRTEC [Concomitant]
  6. SOMA [Concomitant]
  7. TYLENOL [Concomitant]
  8. METOPROLOL [Concomitant]
  9. SPIRONOLACTONE [Concomitant]
  10. PRAVASTATIN [Concomitant]
  11. PRAVASTATIN [Concomitant]
  12. LISINOPRIL [Concomitant]
  13. MOTRIN [Concomitant]
  14. LUNESTA [Concomitant]
  15. CYMBALTA [Concomitant]
  16. CLOTRIMAZOLE CREAM [Concomitant]
  17. TESTERANE [Concomitant]
  18. NOSE SPRAY [Concomitant]
  19. COSAMIN DS [Concomitant]
  20. VITAMIN SUPPLEMENT [Concomitant]

REACTIONS (2)
  - Hyperglycaemia [None]
  - Myocardial infarction [None]
